FAERS Safety Report 14674426 (Version 2)
Quarter: 2018Q2

REPORT INFORMATION
  Report Type: Spontaneous
  Country: US (occurrence: US)
  Receive Date: 20180323
  Receipt Date: 20180418
  Transmission Date: 20180711
  Serious: Yes (Hospitalization, Other)
  Sender: FDA-Public Use
  Company Number: US-JNJFOC-20180319410

PATIENT
  Age: 71 Year
  Sex: Male
  Weight: 86.18 kg

DRUGS (20)
  1. OMEGA 3 FISH OIL [Concomitant]
     Active Substance: FISH OIL\OMEGA-3 FATTY ACIDS
     Indication: NUTRITIONAL SUPPLEMENTATION
     Dosage: MON,WED,FRIDAY
     Route: 065
  2. VITAMIN D3 [Concomitant]
     Active Substance: CHOLECALCIFEROL
     Indication: NUTRITIONAL SUPPLEMENTATION
     Dosage: ONCE A DAY, IN MORNING
     Route: 065
  3. XARELTO [Suspect]
     Active Substance: RIVAROXABAN
     Indication: CEREBROVASCULAR ACCIDENT PROPHYLAXIS
     Route: 048
     Dates: start: 201308
  4. XARELTO [Suspect]
     Active Substance: RIVAROXABAN
     Indication: ATRIAL FIBRILLATION
     Route: 048
     Dates: start: 20170412
  5. XARELTO [Suspect]
     Active Substance: RIVAROXABAN
     Indication: CEREBROVASCULAR ACCIDENT PROPHYLAXIS
     Route: 048
     Dates: start: 20170412
  6. MAGNESIUM [Concomitant]
     Active Substance: MAGNESIUM
     Indication: ATRIAL FIBRILLATION
     Dosage: MONDAY. WEDNESDAY, FRIDAY
     Route: 065
  7. FERROUS SULFATE. [Concomitant]
     Active Substance: FERROUS SULFATE
     Indication: NUTRITIONAL SUPPLEMENTATION
     Dosage: ONCE A DAY, IN MORNING
     Route: 065
  8. DOXYCYCLINE HYCLATE. [Concomitant]
     Active Substance: DOXYCYCLINE HYCLATE
     Dosage: FOR 10 DAYS
     Route: 065
     Dates: start: 201801
  9. XARELTO [Suspect]
     Active Substance: RIVAROXABAN
     Indication: ATRIAL FIBRILLATION
     Route: 048
     Dates: start: 201308
  10. ALLOPURINOL. [Concomitant]
     Active Substance: ALLOPURINOL
     Indication: GOUT
     Route: 065
     Dates: start: 1998
  11. LIPITOR [Concomitant]
     Active Substance: ATORVASTATIN CALCIUM
     Indication: BLOOD CHOLESTEROL
     Route: 065
     Dates: start: 2010, end: 20170208
  12. VITAMIN C [Concomitant]
     Active Substance: ASCORBIC ACID
     Indication: NUTRITIONAL SUPPLEMENTATION
     Dosage: ONCE A DAY, MORNING
     Route: 065
  13. COQ10 [Concomitant]
     Active Substance: UBIDECARENONE
     Indication: ATRIAL FIBRILLATION
     Route: 065
  14. NAPROXEN. [Concomitant]
     Active Substance: NAPROXEN
     Route: 065
     Dates: end: 20170215
  15. DOCUSATE SODIUM. [Concomitant]
     Active Substance: DOCUSATE SODIUM
     Indication: ABNORMAL FAECES
     Dosage: ONCE A DAY IN MORNING
     Route: 065
  16. IRON [Concomitant]
     Active Substance: IRON
     Dosage: 3X375 MG FERROUS SULFATE IN THE MORNING2X375 MG IN THE EVENING
     Route: 065
     Dates: end: 20170208
  17. ASPIRIN. [Concomitant]
     Active Substance: ASPIRIN
     Dosage: 3X375 MG FERROUS SULFATE IN THE MORNING2X375 MG IN THE EVENING
     Route: 065
     Dates: end: 20150126
  18. LIPITOR [Concomitant]
     Active Substance: ATORVASTATIN CALCIUM
     Indication: BLOOD CHOLESTEROL
     Route: 065
     Dates: start: 20170725
  19. VERAPAMIL [Concomitant]
     Active Substance: VERAPAMIL HYDROCHLORIDE
     Dosage: HALF TABLET MORNING AND EVENING
     Route: 065
     Dates: end: 20170208
  20. DOXYCYCLINE HYCLATE. [Concomitant]
     Active Substance: DOXYCYCLINE HYCLATE
     Dosage: 3X375 MG FERROUS SULFATE IN THE MORNING2X375 MG IN THE EVENING
     Route: 065
     Dates: start: 20171128, end: 201712

REACTIONS (14)
  - Pneumonia [Unknown]
  - Rotator cuff repair [Unknown]
  - Back pain [Unknown]
  - Cellulitis [Unknown]
  - Atrial fibrillation [Unknown]
  - Influenza [Unknown]
  - Chromaturia [Unknown]
  - Bronchitis [Unknown]
  - Osteoarthritis [Not Recovered/Not Resolved]
  - Infection [Unknown]
  - Diverticulum intestinal [Unknown]
  - Hernia [Unknown]
  - Haemoglobin decreased [Recovering/Resolving]
  - Hypertension [Unknown]

NARRATIVE: CASE EVENT DATE: 201308
